FAERS Safety Report 15685777 (Version 1)
Quarter: 2018Q4

REPORT INFORMATION
  Report Type: Spontaneous
  Country: US (occurrence: US)
  Receive Date: 20181204
  Receipt Date: 20181204
  Transmission Date: 20190205
  Serious: Yes (Other)
  Sender: FDA-Public Use
  Company Number: US-SA-2018SA328538

PATIENT
  Age: 85 Year
  Sex: Female

DRUGS (12)
  1. RENVELA [Suspect]
     Active Substance: SEVELAMER CARBONATE
     Dosage: 2.4 G, QD
  2. ALLOPURINOL. [Concomitant]
     Active Substance: ALLOPURINOL
  3. HYDRALAZINE [Concomitant]
     Active Substance: HYDRALAZINE HYDROCHLORIDE
  4. FUROSEMIDE. [Concomitant]
     Active Substance: FUROSEMIDE
  5. ISOSORBIDE. [Concomitant]
     Active Substance: ISOSORBIDE
  6. METOPROLOL. [Concomitant]
     Active Substance: METOPROLOL
  7. NIFEDIPINE. [Concomitant]
     Active Substance: NIFEDIPINE
  8. AMIODARONE [Concomitant]
     Active Substance: AMIODARONE
  9. PANTOPRAZOLE [Concomitant]
     Active Substance: PANTOPRAZOLE
  10. INSULIN [Concomitant]
     Active Substance: INSULIN NOS
     Indication: DIABETES MELLITUS
  11. RENVELA [Suspect]
     Active Substance: SEVELAMER CARBONATE
     Dosage: 2.4 G, QD
  12. FERROUS SULFATE. [Concomitant]
     Active Substance: FERROUS SULFATE

REACTIONS (6)
  - Vomiting [Unknown]
  - Decreased appetite [Unknown]
  - Hip fracture [Unknown]
  - Product size issue [Unknown]
  - Peritoneal dialysis [Unknown]
  - Nausea [Unknown]

NARRATIVE: CASE EVENT DATE: 20181128
